FAERS Safety Report 12127152 (Version 2)
Quarter: 2017Q1

REPORT INFORMATION
  Report Type: Spontaneous
  Country: DK (occurrence: DK)
  Receive Date: 20160229
  Receipt Date: 20170125
  Transmission Date: 20170428
  Serious: Yes (Other)
  Sender: FDA-Public Use
  Company Number: DK-SA-2016SA033075

PATIENT
  Age: 41 Year
  Sex: Female

DRUGS (2)
  1. GABAPENTIN. [Concomitant]
     Active Substance: GABAPENTIN
  2. AUBAGIO [Suspect]
     Active Substance: TERIFLUNOMIDE
     Indication: MULTIPLE SCLEROSIS
     Route: 048
     Dates: start: 20141028, end: 20150507

REACTIONS (11)
  - Cough [Recovered/Resolved]
  - Fatigue [Unknown]
  - Sinusitis [Unknown]
  - Chest discomfort [Unknown]
  - Laryngitis [Unknown]
  - Respiratory failure [Recovered/Resolved]
  - Sarcoidosis [Unknown]
  - Lymphadenopathy [Unknown]
  - Nasopharyngitis [Unknown]
  - Pulmonary granuloma [Unknown]
  - Dyspnoea [Recovering/Resolving]

NARRATIVE: CASE EVENT DATE: 2014
